FAERS Safety Report 10387532 (Version 1)
Quarter: 2014Q3

REPORT INFORMATION
  Report Type: Spontaneous
  Country: US (occurrence: US)
  Receive Date: 20140815
  Receipt Date: 20140815
  Transmission Date: 20150326
  Serious: No
  Sender: FDA-Public Use
  Company Number: US-TARO-2014P1001669

PATIENT
  Age: 70 Year
  Sex: Male
  Weight: 86.18 kg

DRUGS (2)
  1. JOCK ITCH [Suspect]
     Active Substance: CLOTRIMAZOLE\TOLNAFTATE
     Indication: TINEA INFECTION
     Dosage: BID
     Route: 061
     Dates: start: 20140205
  2. CLOTRIMAZOLE CREAM 1% (OTC) [Suspect]
     Active Substance: CLOTRIMAZOLE
     Dosage: BID
     Route: 061
     Dates: start: 201402

REACTIONS (2)
  - Body tinea [Unknown]
  - Drug ineffective [Not Recovered/Not Resolved]

NARRATIVE: CASE EVENT DATE: 201402
